FAERS Safety Report 15930986 (Version 2)
Quarter: 2019Q2

REPORT INFORMATION
  Report Type: Spontaneous
  Country: US (occurrence: US)
  Receive Date: 20190207
  Receipt Date: 20190402
  Transmission Date: 20190711
  Serious: No
  Sender: FDA-Public Use
  Company Number: US-ASTRAZENECA-2019SE06799

PATIENT
  Age: 793 Month
  Sex: Female
  Weight: 60.3 kg

DRUGS (1)
  1. SYMBICORT [Suspect]
     Active Substance: BUDESONIDE\FORMOTEROL FUMARATE DIHYDRATE
     Indication: ASTHMA
     Dosage: 160/4.5 MCG, TWO PUFFS IN THE AM AND PM (TWO TIMES A DAY)
     Route: 055

REACTIONS (6)
  - Product dose omission [Unknown]
  - Off label use [Unknown]
  - Device malfunction [Unknown]
  - Lower respiratory tract infection [Unknown]
  - Product use issue [Unknown]
  - Device failure [Unknown]

NARRATIVE: CASE EVENT DATE: 201812
